FAERS Safety Report 5136535-6 (Version None)
Quarter: 2006Q4

REPORT INFORMATION
  Report Type: 
  Country: None (occurrence: None)
  Receive Date: 20061027
  Receipt Date: 20061010
  Transmission Date: 20070319
  Serious: Yes (Disabling)
  Sender: FDA-Public Use
  Company Number: JP-BOEHRINGER INGELHEIM PHARMACEUTICALS, INC.-2006-BP-11869NB

PATIENT
  Sex: Male
  Weight: 48 kg

DRUGS (11)
  1. BI-SIFROL TABLETS [Suspect]
     Indication: PARKINSON'S DISEASE
     Route: 048
     Dates: start: 20041022
  2. MADOPAR (LEVODOPA_BENSERAZIDE HYDROCHLORIDE) [Concomitant]
     Indication: PARKINSON'S DISEASE
     Route: 048
  3. ZYPREXA [Concomitant]
     Indication: HALLUCINATION
     Route: 048
  4. DOPS [Concomitant]
     Indication: PARKINSON'S DISEASE
     Route: 048
  5. CABASER [Concomitant]
     Indication: PARKINSON'S DISEASE
     Route: 048
  6. ALOSENIN [Concomitant]
     Indication: CONSTIPATION
     Route: 048
  7. PURSENNID (SENNOSIDE) [Concomitant]
     Route: 048
     Dates: start: 20050310
  8. FP [Concomitant]
     Route: 048
     Dates: start: 20050310
  9. RITALIN [Concomitant]
     Route: 048
     Dates: start: 20050310
  10. LANSOPRAZOLE [Concomitant]
     Route: 048
     Dates: start: 20050310
  11. FERROMIA (SODIUM FERROUS CITRATE) [Concomitant]
     Route: 048
     Dates: start: 20050310

REACTIONS (2)
  - CEREBRAL HAEMORRHAGE [None]
  - HALLUCINATION [None]
